FAERS Safety Report 5913381-4 (Version None)
Quarter: 2008Q4

REPORT INFORMATION
  Report Type: 
  Country: None (occurrence: None)
  Receive Date: 20081009
  Receipt Date: 20081002
  Transmission Date: 20090506
  Serious: Yes (Other)
  Sender: FDA-Public Use
  Company Number: PHHY2008AU20587

PATIENT
  Sex: Male

DRUGS (3)
  1. AREDIA [Suspect]
     Indication: MULTIPLE MYELOMA
     Dosage: 90 MG, UNK
  2. DURAGESIC-100 [Concomitant]
     Dosage: 50 UG, Q 3 DAYS
     Route: 062
  3. SOMAC [Concomitant]
     Dosage: 20 MG, QD

REACTIONS (2)
  - DERMATITIS [None]
  - EXTRAVASATION [None]
